FAERS Safety Report 20922639 (Version 1)
Quarter: 2022Q2

REPORT INFORMATION
  Report Type: Report from Study
  Country: RO (occurrence: None)
  Receive Date: 20220607
  Receipt Date: 20220607
  Transmission Date: 20220720
  Serious: Yes (Hospitalization)
  Sender: FDA-Public Use
  Company Number: RO-Merck Healthcare KGaA-9326893

PATIENT
  Age: 37 Year
  Sex: Female

DRUGS (1)
  1. REBIF [Suspect]
     Active Substance: INTERFERON BETA-1A
     Indication: Relapsing-remitting multiple sclerosis
     Route: 058
     Dates: start: 20170420

REACTIONS (4)
  - Dyslipidaemia [Unknown]
  - Anaemia [Not Recovered/Not Resolved]
  - Cystitis [Not Recovered/Not Resolved]
  - Nephrolithiasis [Not Recovered/Not Resolved]
